FAERS Safety Report 6333444-1 (Version None)
Quarter: 2009Q3

REPORT INFORMATION
  Report Type: 
  Country: None (occurrence: None)
  Receive Date: 20090828
  Receipt Date: 20090819
  Transmission Date: 20100115
  Serious: Yes (Hospitalization)
  Sender: FDA-Public Use
  Company Number: PHEH2009US09578

PATIENT
  Age: 68 Year
  Sex: Male

DRUGS (1)
  1. GLEEVEC [Suspect]
     Indication: BLOOD DISORDER
     Dosage: UNK
     Dates: start: 20090101

REACTIONS (3)
  - APHASIA [None]
  - ASTHENIA [None]
  - PALLOR [None]
